FAERS Safety Report 4839829-4 (Version None)
Quarter: 2005Q4

REPORT INFORMATION
  Report Type: 
  Country: None (occurrence: None)
  Receive Date: 20051125
  Receipt Date: 20051115
  Transmission Date: 20060501
  Serious: Yes (Hospitalization, Congenital Anomaly)
  Sender: FDA-Public Use
  Company Number: HQWYE626618NOV05

PATIENT
  Sex: Female

DRUGS (1)
  1. EFEXOR XR           (VENLAFAXINE HYDROCHLORIDEXER) [Suspect]
     Indication: ANXIETY DISORDER
     Dosage: 75 MG 1X PER 1 DAY
     Route: 064
     Dates: start: 20010101

REACTIONS (3)
  - CONGENITAL ANOMALY [None]
  - DRUG EXPOSURE DURING PREGNANCY [None]
  - HEART DISEASE CONGENITAL [None]
